FAERS Safety Report 5470564-8 (Version None)
Quarter: 2007Q3

REPORT INFORMATION
  Report Type: 
  Country: None (occurrence: None)
  Receive Date: 20070928
  Receipt Date: 20070925
  Transmission Date: 20080115
  Serious: Yes (Disabling, Other)
  Sender: FDA-Public Use
  Company Number: PHRM2007FR02174

PATIENT
  Age: 15 Year
  Sex: Female
  Weight: 41 kg

DRUGS (2)
  1. TRILEPTAL [Suspect]
     Indication: EPILEPSY
     Dosage: 150 MG, BID
     Route: 048
     Dates: start: 20070906, end: 20070908
  2. TRILEPTAL [Suspect]
     Dosage: 150 MG AM, 300 MG EVENING
     Route: 048
     Dates: start: 20070909

REACTIONS (4)
  - AMNESIA [None]
  - BLOOD PRESSURE SYSTOLIC DECREASED [None]
  - DYSPNOEA [None]
  - FATIGUE [None]
